FAERS Safety Report 21493191 (Version 1)
Quarter: 2022Q4

REPORT INFORMATION
  Report Type: Spontaneous
  Country: US (occurrence: None)
  Receive Date: 20221021
  Receipt Date: 20221021
  Transmission Date: 20230112
  Serious: Yes (Hospitalization)
  Sender: FDA-Public Use
  Company Number: None

PATIENT
  Sex: Male
  Weight: 111.6 kg

DRUGS (7)
  1. CYCLOPHOSPHAMIDE [Suspect]
     Active Substance: CYCLOPHOSPHAMIDE
     Indication: Drug therapy
     Dates: end: 20220106
  2. CYTARABINE [Suspect]
     Active Substance: CYTARABINE
     Indication: Drug therapy
     Dates: end: 20220104
  3. SPRYCEL [Suspect]
     Active Substance: DASATINIB
     Indication: Drug therapy
     Dates: end: 20220120
  4. DEXAMETHASONE [Suspect]
     Active Substance: DEXAMETHASONE
     Indication: Electrocardiogram abnormal
     Dates: end: 20220117
  5. DOXORUBICIN HYDROCHLORIDE [Suspect]
     Active Substance: DOXORUBICIN HYDROCHLORIDE
     Indication: Drug therapy
     Dates: end: 20220107
  6. METHOTREXATE [Suspect]
     Active Substance: METHOTREXATE
     Indication: Drug therapy
     Dates: end: 20220111
  7. VINCRISTINE SULFATE [Suspect]
     Active Substance: VINCRISTINE SULFATE
     Indication: Drug therapy
     Dates: end: 20220114

REACTIONS (4)
  - Atrial fibrillation [None]
  - Dehydration [None]
  - Electrocardiogram T wave abnormal [None]
  - Electrocardiogram abnormal [None]

NARRATIVE: CASE EVENT DATE: 20220120
